FAERS Safety Report 11700457 (Version 1)
Quarter: 2015Q4

REPORT INFORMATION
  Report Type: Report from Study
  Country: US (occurrence: US)
  Receive Date: 20151105
  Receipt Date: 20151105
  Transmission Date: 20160304
  Serious: Yes (Other)
  Sender: FDA-Public Use
  Company Number: US-AMGEN-USASL2015115142

PATIENT
  Age: 59 Year
  Sex: Female

DRUGS (1)
  1. ENBREL [Suspect]
     Active Substance: ETANERCEPT
     Indication: RHEUMATOID ARTHRITIS
     Dosage: UNK
     Route: 065
     Dates: start: 2008

REACTIONS (11)
  - Rheumatoid arthritis [Unknown]
  - Rotator cuff syndrome [Unknown]
  - Sciatica [Unknown]
  - Implantable defibrillator insertion [Unknown]
  - Knee arthroplasty [Unknown]
  - Walking aid user [Unknown]
  - Muscle strain [Unknown]
  - Bone disorder [Unknown]
  - Gait disturbance [Unknown]
  - Pain in extremity [Unknown]
  - Muscle disorder [Unknown]

NARRATIVE: CASE EVENT DATE: 2009
